FAERS Safety Report 16600713 (Version 8)
Quarter: 2020Q2

REPORT INFORMATION
  Report Type: Spontaneous
  Country: US (occurrence: US)
  Receive Date: 20190719
  Receipt Date: 20200619
  Transmission Date: 20200713
  Serious: Yes (Hospitalization, Other)
  Sender: FDA-Public Use
  Company Number: US-PFIZER INC-2019307236

PATIENT
  Age: 79 Year
  Sex: Female
  Weight: 82 kg

DRUGS (1)
  1. XELJANZ XR [Suspect]
     Active Substance: TOFACITINIB CITRATE
     Indication: RHEUMATOID ARTHRITIS
     Dosage: 11 MG, 1X/DAY
     Route: 048

REACTIONS (6)
  - Gait disturbance [Not Recovered/Not Resolved]
  - Sinusitis [Unknown]
  - Blood potassium increased [Unknown]
  - Joint dislocation [Unknown]
  - Arthralgia [Unknown]
  - Wound infection [Unknown]

NARRATIVE: CASE EVENT DATE: 20190902
